FAERS Safety Report 10180800 (Version 2)
Quarter: 2014Q2

REPORT INFORMATION
  Report Type: Spontaneous
  Country: US (occurrence: US)
  Receive Date: 20140519
  Receipt Date: 20140519
  Transmission Date: 20141212
  Serious: No
  Sender: FDA-Public Use
  Company Number: US-AMGEN INC.-USASP2014007395

PATIENT
  Age: 75 Year
  Sex: Female
  Weight: 60.77 kg

DRUGS (1)
  1. PROLIA [Suspect]
     Indication: OSTEOPOROSIS
     Dosage: 60 UNIT, Q6MO
     Route: 058
     Dates: start: 20140124

REACTIONS (4)
  - Back pain [Recovered/Resolved]
  - Abdominal pain lower [Unknown]
  - Arthralgia [Unknown]
  - Pain in extremity [Unknown]
